FAERS Safety Report 14220922 (Version 2)
Quarter: 2017Q4

REPORT INFORMATION
  Report Type: Report from Study
  Country: BR (occurrence: BR)
  Receive Date: 20171124
  Receipt Date: 20171205
  Transmission Date: 20180321
  Serious: Yes (Hospitalization, Other)
  Sender: FDA-Public Use
  Company Number: PHHY2017BR172385

PATIENT
  Sex: Male

DRUGS (1)
  1. EXELON PATCH [Suspect]
     Active Substance: RIVASTIGMINE
     Indication: PRODUCT USED FOR UNKNOWN INDICATION
     Route: 062

REACTIONS (8)
  - Agitation [Unknown]
  - Gait disturbance [Unknown]
  - Coordination abnormal [Unknown]
  - Cerebrovascular accident [Unknown]
  - Cerebral atrophy [Unknown]
  - Obesity [Unknown]
  - Dementia [Unknown]
  - Hypokinesia [Unknown]
